FAERS Safety Report 5896897-9 (Version None)
Quarter: 2008Q3

REPORT INFORMATION
  Report Type: 
  Country: None (occurrence: None)
  Receive Date: 20080924
  Receipt Date: 20080911
  Transmission Date: 20090109
  Serious: Yes (Death)
  Sender: FDA-Public Use
  Company Number: JP-BAYER-200811253BYL

PATIENT
  Age: 76 Year
  Sex: Male
  Weight: 60 kg

DRUGS (14)
  1. NEXAVAR [Suspect]
     Indication: RENAL CELL CARCINOMA STAGE IV
     Dosage: TOTAL DAILY DOSE: 800 MG  UNIT DOSE: 200 MG
     Route: 048
     Dates: start: 20080516
  2. KREMEZIN [Concomitant]
     Indication: RENAL FAILURE CHRONIC
     Dosage: AS USED: 6 G
     Route: 048
     Dates: start: 20080516
  3. SODIUM BICARBONATE [Concomitant]
     Dosage: AS USED: 3 G
     Route: 048
     Dates: start: 20080516
  4. BLOPRESS [Concomitant]
     Indication: HYPERTENSION
     Dosage: AS USED: 8 MG
     Route: 048
     Dates: start: 20080516
  5. ZYLORIC [Concomitant]
     Dosage: AS USED: 100 MG
     Route: 048
     Dates: start: 20080516
  6. PRAVASTATIN SODIUM [Concomitant]
     Indication: HYPERLIPIDAEMIA
     Dosage: AS USED: 5 MG
     Route: 048
     Dates: start: 20080516
  7. LOXONIN [Concomitant]
     Indication: CANCER PAIN
     Dosage: AS USED: 120 MG  UNIT DOSE: 60 MG
     Route: 048
     Dates: start: 20080516
  8. MUCOSTA [Concomitant]
     Dosage: AS USED: 200 MG
     Route: 048
     Dates: start: 20080516
  9. PERIACTIN [Concomitant]
     Dosage: AS USED: 8 MG
     Route: 048
     Dates: start: 20080516
  10. FERRUM [Concomitant]
     Dosage: AS USED: 305 MG
     Route: 048
     Dates: start: 20080516
  11. PROHEPARUM [Concomitant]
     Dosage: AS USED: 3 DF  UNIT DOSE: 1 DF
     Route: 048
     Dates: start: 20080516
  12. MOBIC [Concomitant]
     Dosage: AS USED: 10 MG
     Route: 048
     Dates: start: 20080516
  13. PURSENNID [Concomitant]
     Indication: CONSTIPATION
     Route: 048
     Dates: start: 20080516
  14. ESPO [Concomitant]
     Route: 058
     Dates: start: 20080516

REACTIONS (2)
  - ALTERED STATE OF CONSCIOUSNESS [None]
  - RENAL FAILURE [None]
